FAERS Safety Report 8262926-0 (Version None)
Quarter: 2012Q2

REPORT INFORMATION
  Report Type: 
  Country: None (occurrence: None)
  Receive Date: 20120405
  Receipt Date: 20120402
  Transmission Date: 20120825
  Serious: Yes (Other)
  Sender: FDA-Public Use
  Company Number: SE-GLAXOSMITHKLINE-B0792977A

PATIENT
  Age: 28 Year
  Sex: Male

DRUGS (3)
  1. KEPPRA [Concomitant]
  2. LAMICTAL [Concomitant]
  3. POTIGA [Suspect]
     Indication: CONVULSION
     Dosage: 50MG THREE TIMES PER DAY
     Route: 065

REACTIONS (1)
  - CONVULSION [None]
